FAERS Safety Report 21332885 (Version 1)
Quarter: 2022Q3

REPORT INFORMATION
  Report Type: Spontaneous
  Country: IT (occurrence: IT)
  Receive Date: 20220914
  Receipt Date: 20220914
  Transmission Date: 20221026
  Serious: Yes (Hospitalization)
  Sender: FDA-Public Use
  Company Number: IT-NOVARTISPH-NVSC2022IT203935

PATIENT
  Age: 16 Year
  Sex: Male

DRUGS (2)
  1. CLARITHROMYCIN [Interacting]
     Active Substance: CLARITHROMYCIN
     Indication: Skin infection
     Dosage: UNK
     Route: 048
  2. RIFABUTIN [Interacting]
     Active Substance: RIFABUTIN
     Indication: Skin infection
     Dosage: UNK
     Route: 048

REACTIONS (6)
  - Neutropenia [Unknown]
  - Purpura [Unknown]
  - Pyrexia [Unknown]
  - Rash maculo-papular [Unknown]
  - Thrombocytopenia [Unknown]
  - Drug interaction [Unknown]
